FAERS Safety Report 14604644 (Version 1)
Quarter: 2018Q1

REPORT INFORMATION
  Report Type: Spontaneous
  Country: US (occurrence: US)
  Receive Date: 20180306
  Receipt Date: 20180306
  Transmission Date: 20180509
  Serious: Yes (Hospitalization)
  Sender: FDA-Public Use
  Company Number: None

PATIENT
  Age: 28 Year
  Sex: Female

DRUGS (1)
  1. KALYDECO [Suspect]
     Active Substance: IVACAFTOR

REACTIONS (4)
  - Pneumonia [None]
  - Influenza [None]
  - Impaired work ability [None]
  - Therapy change [None]

NARRATIVE: CASE EVENT DATE: 20180223
